FAERS Safety Report 9995731 (Version 1)
Quarter: 2014Q1

REPORT INFORMATION
  Report Type: Spontaneous
  Country: US (occurrence: None)
  Receive Date: 20140225
  Receipt Date: 20140225
  Transmission Date: 20141002
  Serious: Yes (Hospitalization)
  Sender: FDA-Public Use
  Company Number: 2013-US-001613

PATIENT
  Age: 71 Year
  Sex: Male

DRUGS (2)
  1. PRIALT [Suspect]
     Indication: SPINAL PAIN
     Dosage: UNK MG, QH, INTRATHECAL
     Route: 037
  2. PRIALT [Suspect]
     Indication: SPINAL COLUMN STENOSIS
     Dosage: UNK MG, QH, INTRATHECAL
     Route: 037

REACTIONS (6)
  - Loss of consciousness [None]
  - Mental status changes [None]
  - Aphasia [None]
  - Overdose [None]
  - Confusional state [None]
  - Device issue [None]
